FAERS Safety Report 8479097 (Version 6)
Quarter: 2012Q4

REPORT INFORMATION
  Report Type: Report from Study
  Country: DE (occurrence: DE)
  Receive Date: 20120327
  Receipt Date: 20120920
  Transmission Date: 20130627
  Serious: Yes (Death, Hospitalization)
  Sender: FDA-Public Use
  Company Number: DE-ROCHE-1040531

PATIENT
  Age: 76 None
  Sex: Female
  Weight: 62 kg

DRUGS (4)
  1. ZELBORAF [Suspect]
     Indication: METASTATIC MALIGNANT MELANOMA
     Dosage: Date of last dose prior to SAE: 09/Feb/2012
     Route: 048
     Dates: start: 20120113, end: 20120314
  2. ENALAPRIL [Concomitant]
  3. CARMEN [Concomitant]
  4. BISOPROLOL [Concomitant]

REACTIONS (1)
  - Chronic fatigue syndrome [Fatal]
